FAERS Safety Report 10160693 (Version 1)
Quarter: 2014Q2

REPORT INFORMATION
  Report Type: Spontaneous
  Country: US (occurrence: None)
  Receive Date: 20140507
  Receipt Date: 20140507
  Transmission Date: 20141212
  Serious: Yes (Other)
  Sender: FDA-Public Use
  Company Number: None

PATIENT
  Age: 48 Year
  Sex: Female
  Weight: 66.68 kg

DRUGS (4)
  1. LEVOFLOXACIN [Suspect]
     Indication: SINUSITIS
     Route: 048
     Dates: start: 20140421, end: 20140424
  2. MULTIVITAMIN [Concomitant]
  3. VITA B-6 [Concomitant]
  4. FISH OIL [Concomitant]

REACTIONS (4)
  - Musculoskeletal stiffness [None]
  - Arthralgia [None]
  - Arthralgia [None]
  - Immobile [None]
